FAERS Safety Report 8156165-1 (Version None)
Quarter: 2012Q1

REPORT INFORMATION
  Report Type: 
  Country: None (occurrence: None)
  Receive Date: 20120222
  Receipt Date: 20120131
  Transmission Date: 20120608
  Serious: No
  Sender: FDA-Public Use
  Company Number: US-ROXANE LABORATORIES, INC.-2012-RO-00588RO

PATIENT
  Sex: Female

DRUGS (1)
  1. CODEINE SUL TAB [Suspect]

REACTIONS (2)
  - ABDOMINAL PAIN [None]
  - URTICARIA [None]
